FAERS Safety Report 7166819-1 (Version None)
Quarter: 2010Q4

REPORT INFORMATION
  Report Type: 
  Country: None (occurrence: None)
  Receive Date: 20101213
  Receipt Date: 20101213
  Transmission Date: 20110411
  Serious: Yes (Other)
  Sender: FDA-Public Use
  Company Number: None

PATIENT
  Age: 59 Year
  Sex: Male
  Weight: 94.8018 kg

DRUGS (1)
  1. PRISTIQ [Suspect]
     Indication: DEPRESSION
     Dosage: 100 MG 1X PER DAY PO
     Route: 048
     Dates: start: 20080101, end: 20101212

REACTIONS (2)
  - DRUG WITHDRAWAL SYNDROME [None]
  - NO THERAPEUTIC RESPONSE [None]
